FAERS Safety Report 5061910-8 (Version None)
Quarter: 2006Q3

REPORT INFORMATION
  Report Type: 
  Country: None (occurrence: None)
  Receive Date: 20060703
  Receipt Date: 20051212
  Transmission Date: 20061208
  Serious: No
  Sender: FDA-Public Use
  Company Number: 2005S1011931

PATIENT
  Age: 58 Year
  Sex: Female

DRUGS (9)
  1. CLOZAPINE [Suspect]
     Indication: SCHIZOPHRENIA, UNDIFFERENTIATED TYPE
     Dosage: SEE IMAGE
     Route: 048
     Dates: start: 20041118
  2. CLOZAPINE [Suspect]
     Indication: SCHIZOPHRENIA, UNDIFFERENTIATED TYPE
     Dosage: SEE IMAGE
     Route: 048
     Dates: start: 20041118
  3. CLOZAPINE [Suspect]
     Indication: SCHIZOPHRENIA, UNDIFFERENTIATED TYPE
     Dosage: SEE IMAGE
     Route: 048
     Dates: start: 20041118
  4. ACETYLSALICYLIC ACID SRT [Concomitant]
  5. ALBUTEROL SPIROS [Concomitant]
  6. ATORVASTATIN CALCIUM [Concomitant]
  7. DONEPEZIL HYDROCHLORIDE [Concomitant]
  8. OXYBUTYNIN HYDROCHLORIDE [Concomitant]
  9. VALPROATE SODIUM [Concomitant]

REACTIONS (1)
  - GRANULOCYTOPENIA [None]
